FAERS Safety Report 8238085-7 (Version None)
Quarter: 2012Q1

REPORT INFORMATION
  Report Type: 
  Country: None (occurrence: None)
  Receive Date: 20120327
  Receipt Date: 20120322
  Transmission Date: 20120608
  Serious: Yes (Hospitalization)
  Sender: FDA-Public Use
  Company Number: JP-GLAXOSMITHKLINE-B0787106A

PATIENT
  Sex: Male

DRUGS (4)
  1. NOVOLIN R [Concomitant]
     Dosage: 12IU3 PER DAY
     Route: 058
     Dates: start: 20091214
  2. FLUTICASONE PROPIONATE/SALMETEROL [Suspect]
     Indication: CHRONIC OBSTRUCTIVE PULMONARY DISEASE
     Dosage: 500MCG PER DAY
     Route: 055
     Dates: start: 20100815
  3. SPIRIVA [Concomitant]
     Indication: CHRONIC OBSTRUCTIVE PULMONARY DISEASE
     Dosage: 18MCG PER DAY
     Route: 055
     Dates: start: 20091214
  4. AMLODIPINE [Concomitant]
     Indication: HYPERTENSION
     Dosage: 2.5MG PER DAY
     Route: 048
     Dates: start: 20110615

REACTIONS (7)
  - COUGH [None]
  - CHEST X-RAY ABNORMAL [None]
  - PNEUMONIA [None]
  - OROPHARYNGEAL PAIN [None]
  - DYSPNOEA [None]
  - PYREXIA [None]
  - INFLUENZA [None]
